FAERS Safety Report 7721532-4 (Version None)
Quarter: 2011Q3

REPORT INFORMATION
  Report Type: 
  Country: None (occurrence: None)
  Receive Date: 20110831
  Receipt Date: 20110819
  Transmission Date: 20111222
  Serious: Yes (Other)
  Sender: FDA-Public Use
  Company Number: US-US-EMD SERONO, INC.-7078098

PATIENT
  Sex: Female

DRUGS (4)
  1. UNSPECIFIED BLOOD PRESURE MEDICATION [Concomitant]
     Indication: HYPERTENSION
  2. REBIF [Suspect]
     Indication: PRODUCT USED FOR UNKNOWN INDICATION
     Route: 058
     Dates: start: 20110214
  3. REBIF [Suspect]
     Route: 058
  4. UNSPECIFIED BLOOD PRESSURE MEDICATION [Concomitant]
     Indication: HYPERTENSION

REACTIONS (4)
  - CHILLS [None]
  - PYREXIA [None]
  - MYALGIA [None]
  - BLOOD PRESSURE INCREASED [None]
